FAERS Safety Report 5811993-X (Version None)
Quarter: 2008Q3

REPORT INFORMATION
  Report Type: 
  Country: None (occurrence: None)
  Receive Date: 20080716
  Receipt Date: 20080710
  Transmission Date: 20090109
  Serious: Yes (Hospitalization)
  Sender: FDA-Public Use
  Company Number: DE-BAYER-200817707GPV

PATIENT
  Age: 85 Year
  Sex: Male
  Weight: 80 kg

DRUGS (3)
  1. SORAFENIB [Suspect]
     Indication: MALIGNANT MELANOMA
     Dosage: AS USED: 400 MG
     Route: 048
     Dates: start: 20080409
  2. PEG-INTRON [Suspect]
     Indication: MALIGNANT MELANOMA
     Route: 058
     Dates: start: 20080409
  3. MOBLOC [Concomitant]
     Indication: HYPERTENSION
     Route: 065

REACTIONS (2)
  - GENERAL PHYSICAL HEALTH DETERIORATION [None]
  - HAEMOGLOBIN DECREASED [None]
